FAERS Safety Report 4693567-X (Version None)
Quarter: 2005Q2

REPORT INFORMATION
  Report Type: 
  Country: None (occurrence: None)
  Receive Date: 20050613
  Receipt Date: 20050329
  Transmission Date: 20051028
  Serious: No
  Sender: FDA-Public Use
  Company Number: 2004-00881

PATIENT
  Age: 85 Year
  Sex: Male
  Weight: 77.1 kg

DRUGS (4)
  1. VELCADE [Suspect]
     Indication: MULTIPLE MYELOMA
     Dosage: 2.14-2.04 MG, 2/WEEK, INTRAVENOUS
     Route: 042
     Dates: start: 20030501
  2. KYTRIL [Concomitant]
  3. DEXAMETHASONE [Concomitant]
  4. ATROPINE [Concomitant]

REACTIONS (3)
  - DIARRHOEA [None]
  - NEUROPATHY PERIPHERAL [None]
  - PLATELET COUNT DECREASED [None]
